FAERS Safety Report 6236096-4 (Version None)
Quarter: 2009Q2

REPORT INFORMATION
  Report Type: 
  Country: None (occurrence: None)
  Receive Date: 20090619
  Receipt Date: 20090610
  Transmission Date: 20091009
  Serious: Yes (Death)
  Sender: FDA-Public Use
  Company Number: JP-BRISTOL-MYERS SQUIBB COMPANY-14669022

PATIENT
  Age: 78 Year
  Sex: Female

DRUGS (2)
  1. AMPHOTERICIN B [Suspect]
     Indication: MUCORMYCOSIS
  2. AMPHOTERICIN B [Suspect]
     Indication: MUCORMYCOSIS

REACTIONS (1)
  - RENAL FAILURE ACUTE [None]
